FAERS Safety Report 17944490 (Version 17)
Quarter: 2020Q4

REPORT INFORMATION
  Report Type: Report from Study
  Country: CA (occurrence: CA)
  Receive Date: 20200625
  Receipt Date: 20201109
  Transmission Date: 20210113
  Serious: Yes (Hospitalization)
  Sender: FDA-Public Use
  Company Number: CA-AMGEN-CANSL2020099972

PATIENT
  Age: 59 Year
  Sex: Male
  Weight: 125 kg

DRUGS (11)
  1. KYPROLIS [Suspect]
     Active Substance: CARFILZOMIB
     Indication: PLASMA CELL MYELOMA
     Dosage: 154 MILLIGRAM, DAYS 1, 8, 15
     Route: 042
  2. DEXAMETHASONE. [Concomitant]
     Active Substance: DEXAMETHASONE
     Indication: PLASMA CELL MYELOMA
     Dosage: UNK, ORAL OR IV
  3. KYPROLIS [Suspect]
     Active Substance: CARFILZOMIB
     Dosage: 154 MILLIGRAM, DAYS 1, 8, 15
     Route: 042
  4. KYPROLIS [Suspect]
     Active Substance: CARFILZOMIB
     Dosage: 154 MILLIGRAM, DAYS 1, 8, 15
     Route: 042
  5. KYPROLIS [Suspect]
     Active Substance: CARFILZOMIB
     Dosage: 154 MILLIGRAM, DAYS 1, 8, 15
     Route: 065
  6. KYPROLIS [Suspect]
     Active Substance: CARFILZOMIB
     Dosage: 154 MILLIGRAM, DAYS 1, 8, 15
     Route: 042
  7. KYPROLIS [Suspect]
     Active Substance: CARFILZOMIB
     Dosage: 154 MILLIGRAM, DAYS 1, 8, 15
     Route: 042
  8. KYPROLIS [Suspect]
     Active Substance: CARFILZOMIB
     Dosage: 154 MILLIGRAM, DAYS 1, 8, 15
     Route: 042
  9. KYPROLIS [Suspect]
     Active Substance: CARFILZOMIB
     Dosage: 154 MILLIGRAM, DAYS 1, 8, 15
     Route: 065
  10. KYPROLIS [Suspect]
     Active Substance: CARFILZOMIB
     Dosage: 154 MILLIGRAM, DAYS 1, 8, 15
     Route: 042
  11. LENALIDOMIDE [Concomitant]
     Active Substance: LENALIDOMIDE
     Indication: PLASMA CELL MYELOMA
     Dosage: UNK
     Route: 048

REACTIONS (14)
  - Heart rate increased [Not Recovered/Not Resolved]
  - Pain [Not Recovered/Not Resolved]
  - Hypotension [Unknown]
  - Erythema [Unknown]
  - Skin burning sensation [Unknown]
  - Malaise [Unknown]
  - Somnolence [Not Recovered/Not Resolved]
  - Infection [Recovering/Resolving]
  - Sleep disorder [Unknown]
  - Fatigue [Not Recovered/Not Resolved]
  - Dyspnoea [Not Recovered/Not Resolved]
  - Hypertension [Unknown]
  - Nasopharyngitis [Not Recovered/Not Resolved]
  - Wound [Recovered/Resolved]

NARRATIVE: CASE EVENT DATE: 2020
